FAERS Safety Report 8202809-5 (Version None)
Quarter: 2012Q1

REPORT INFORMATION
  Report Type: 
  Country: None (occurrence: None)
  Receive Date: 20120312
  Receipt Date: 20120312
  Transmission Date: 20120608
  Serious: Yes (Other)
  Sender: FDA-Public Use
  Company Number: None

PATIENT
  Age: 15 Year
  Sex: Male
  Weight: 69 kg

DRUGS (3)
  1. FEMARA [Suspect]
     Indication: GROWTH RETARDATION
     Dosage: 2.5 MG
     Route: 048
     Dates: start: 20080701, end: 20110811
  2. SAIZEN [Concomitant]
     Route: 058
  3. FEMARA [Concomitant]
     Dosage: 2.5 MG
     Route: 048
     Dates: start: 20080701, end: 20110811

REACTIONS (2)
  - ARTHRALGIA [None]
  - DECREASED ACTIVITY [None]
